FAERS Safety Report 5240298-3 (Version None)
Quarter: 2007Q1

REPORT INFORMATION
  Report Type: 
  Country: None (occurrence: None)
  Receive Date: 20061208
  Receipt Date: 20050128
  Transmission Date: 20070707
  Serious: Yes (Other)
  Sender: FDA-Public Use
  Company Number: 2005UW01600

PATIENT
  Age: 57 Year
  Sex: Male
  Weight: 145.14 kg

DRUGS (4)
  1. CRESTOR [Suspect]
     Indication: HYPERCHOLESTEROLAEMIA
     Dosage: 10 MG PO
     Route: 048
     Dates: start: 20050101
  2. TARKA [Concomitant]
  3. GLUCOVANCE [Concomitant]
  4. AVANDIA [Concomitant]

REACTIONS (1)
  - HYPOAESTHESIA ORAL [None]
